FAERS Safety Report 9565064 (Version 1)
Quarter: 2013Q3

REPORT INFORMATION
  Report Type: Spontaneous
  Country: IN (occurrence: IN)
  Receive Date: 20130930
  Receipt Date: 20130930
  Transmission Date: 20140515
  Serious: Yes (Hospitalization, Other)
  Sender: FDA-Public Use
  Company Number: PHHY2013IN106548

PATIENT
  Age: 45 Year
  Sex: Male

DRUGS (2)
  1. VALPROIC ACID [Suspect]
     Indication: MOVEMENT DISORDER
     Dosage: 1.5 G, UNK
  2. CLOBAZAM [Suspect]
     Indication: MOVEMENT DISORDER
     Dosage: 40 MG, UNK

REACTIONS (17)
  - Hashimoto^s encephalopathy [Recovered/Resolved]
  - Blood thyroid stimulating hormone increased [Recovered/Resolved]
  - Convulsion [Recovered/Resolved]
  - Anti-thyroid antibody positive [Recovered/Resolved]
  - Dyskinesia [Recovered/Resolved]
  - Speech disorder [Recovered/Resolved]
  - Cognitive disorder [Recovered/Resolved]
  - Paraesthesia [Recovered/Resolved]
  - Extensor plantar response [Recovered/Resolved]
  - Hyporeflexia [Recovered/Resolved]
  - Dysarthria [Recovered/Resolved]
  - Disturbance in attention [Unknown]
  - Thyroid atrophy [Unknown]
  - Thyroid size decreased [Unknown]
  - Hypertension [Unknown]
  - Haematemesis [Recovered/Resolved]
  - Drug ineffective [Unknown]
